FAERS Safety Report 9125870 (Version 1)
Quarter: 2013Q1

REPORT INFORMATION
  Report Type: Spontaneous
  Country: US (occurrence: US)
  Receive Date: 20130117
  Receipt Date: 20130117
  Transmission Date: 20140127
  Serious: Yes (Hospitalization)
  Sender: FDA-Public Use
  Company Number: US-BAYER-2013-005086

PATIENT
  Age: 39 Year
  Sex: Female

DRUGS (10)
  1. BEYAZ [Suspect]
     Indication: MENORRHAGIA
  2. BEYAZ [Suspect]
     Indication: OVARIAN CYST
  3. VALTREX [Concomitant]
     Indication: HERPES SIMPLEX
     Dosage: 500 MG, UNK
     Route: 048
  4. DEPAKOTE [Concomitant]
     Dosage: 500 MG, BID, DAILY
     Route: 048
  5. WELLBUTRIN [Concomitant]
     Dosage: 150 MG, ONE TIME AND 300 MG, ONE TIME
  6. WELLBUTRIN [Concomitant]
     Dosage: UNK
  7. TOPAMAX [Concomitant]
     Dosage: 200 MG, ONCE
     Route: 048
  8. HYDROCODONE [Concomitant]
     Dosage: 5-500 MG, PRN
     Route: 048
  9. FROVA [Concomitant]
     Indication: MIGRAINE
     Dosage: 2-8 MG, PRN
     Route: 048
  10. AMOXICILLIN [Concomitant]
     Indication: SINUSITIS
     Route: 048

REACTIONS (1)
  - Pulmonary embolism [None]
